FAERS Safety Report 5363498-0 (Version None)
Quarter: 2007Q2

REPORT INFORMATION
  Report Type: 
  Country: None (occurrence: None)
  Receive Date: 20070618
  Receipt Date: 20070605
  Transmission Date: 20071010
  Serious: Yes (Death, Hospitalization)
  Sender: FDA-Public Use
  Company Number: 16762

PATIENT
  Sex: Male

DRUGS (9)
  1. CARBOPLATIN [Suspect]
     Indication: NEOPLASM MALIGNANT
     Dosage: 1 FREQ  IV
     Route: 042
     Dates: start: 20041215, end: 20041215
  2. METHOTREXATE [Suspect]
     Indication: NEOPLASM MALIGNANT
     Dosage: 1 FREQ IV
     Route: 042
     Dates: start: 20041215, end: 20041230
  3. VINBLASTINE SULFATE [Suspect]
     Indication: NEOPLASM MALIGNANT
     Dosage: 1 FREQ IV
     Route: 042
     Dates: start: 20041215, end: 20041230
  4. BENDROFLUAZIDE [Concomitant]
  5. CODEINE PHOSPHATE [Concomitant]
  6. MOVICOL /01053601/ [Concomitant]
  7. NIFEDIPINE [Concomitant]
  8. ACETAMINOPHEN [Concomitant]
  9. RAMIPRIL [Concomitant]

REACTIONS (14)
  - ARTHRALGIA [None]
  - BLOOD CULTURE POSITIVE [None]
  - CATHETER RELATED COMPLICATION [None]
  - CHILLS [None]
  - CULTURE URINE POSITIVE [None]
  - DYSPNOEA [None]
  - FEELING COLD [None]
  - FEMORAL NECK FRACTURE [None]
  - MUSCULOSKELETAL CHEST PAIN [None]
  - MUSCULOSKELETAL DISCOMFORT [None]
  - NEUTROPENIC SEPSIS [None]
  - PAIN IN EXTREMITY [None]
  - PENILE PAIN [None]
  - STAPHYLOCOCCAL INFECTION [None]
